FAERS Safety Report 13269233 (Version 2)
Quarter: 2017Q1

REPORT INFORMATION
  Report Type: Report from Study
  Country: US (occurrence: US)
  Receive Date: 20170224
  Receipt Date: 20170228
  Transmission Date: 20170428
  Serious: No
  Sender: FDA-Public Use
  Company Number: PHEH2017US005229

PATIENT
  Age: 74 Year
  Sex: Female

DRUGS (2)
  1. TAMOXIFEN [Concomitant]
     Active Substance: TAMOXIFEN
     Indication: PRODUCT USED FOR UNKNOWN INDICATION
     Route: 065
  2. SANDOSTATIN LAR DEPOT [Suspect]
     Active Substance: OCTREOTIDE ACETATE
     Indication: CARCINOID TUMOUR
     Dosage: 30 MG, QMO
     Route: 065

REACTIONS (7)
  - Injection site mass [Recovering/Resolving]
  - Injection site pain [Unknown]
  - Feeling abnormal [Unknown]
  - Chills [Unknown]
  - Injection site swelling [Unknown]
  - Therapy non-responder [Unknown]
  - Furuncle [Unknown]

NARRATIVE: CASE EVENT DATE: 20170106
